FAERS Safety Report 4462657-9 (Version None)
Quarter: 2004Q3

REPORT INFORMATION
  Report Type: 
  Country: None (occurrence: None)
  Receive Date: 20040929
  Receipt Date: 20040915
  Transmission Date: 20050211
  Serious: Yes (Hospitalization)
  Sender: FDA-Public Use
  Company Number: 2004UW17443

PATIENT
  Age: 34 Year
  Sex: Male
  Weight: 77.1115 kg

DRUGS (1)
  1. ZOMIG [Suspect]
     Indication: MIGRAINE
     Dosage: 2.5 MG QD PO
     Route: 048
     Dates: start: 20000808, end: 20040726

REACTIONS (3)
  - ARTERIAL SPASM [None]
  - MIGRAINE WITHOUT AURA [None]
  - RENAL INFARCT [None]
